FAERS Safety Report 4989306-5 (Version None)
Quarter: 2006Q2

REPORT INFORMATION
  Report Type: 
  Country: None (occurrence: None)
  Receive Date: 20060425
  Receipt Date: 20060410
  Transmission Date: 20061013
  Serious: Yes (Hospitalization)
  Sender: FDA-Public Use
  Company Number: US-2005-025311

PATIENT
  Age: 51 Year
  Sex: Female
  Weight: 53 kg

DRUGS (5)
  1. BETASERON [Suspect]
     Indication: MULTIPLE SCLEROSIS
     Dosage: 8 MIU, EVERY 2D, SUBCUTANEOUS
     Route: 058
     Dates: start: 20050930
  2. ELAVIL [Concomitant]
  3. VOLTAREN [Concomitant]
  4. ADDERALL (DEXAMFETAMIN SULFATE, AMFETAMINE ASPARTATE, DEXAMEFETAMINE S [Concomitant]
  5. BACLOFEN [Concomitant]

REACTIONS (4)
  - BALANCE DISORDER [None]
  - DIZZINESS [None]
  - FALL [None]
  - FEMUR FRACTURE [None]
